FAERS Safety Report 25579909 (Version 1)
Quarter: 2025Q3

REPORT INFORMATION
  Report Type: Spontaneous
  Country: US (occurrence: US)
  Receive Date: 20250718
  Receipt Date: 20250718
  Transmission Date: 20251021
  Serious: No
  Sender: NOVO NORDISK
  Company Number: US-NOVOPROD-1313633

PATIENT
  Age: 69 Year
  Sex: Female

DRUGS (4)
  1. WEGOVY [Suspect]
     Active Substance: SEMAGLUTIDE
     Indication: Weight control
     Dosage: 0.5 MG, QW
     Route: 058
     Dates: start: 202401, end: 202408
  2. WEGOVY [Suspect]
     Active Substance: SEMAGLUTIDE
     Indication: Hypertension
  3. SAXENDA [Suspect]
     Active Substance: LIRAGLUTIDE
     Indication: Weight control
     Route: 058
     Dates: end: 202408
  4. SAXENDA [Suspect]
     Active Substance: LIRAGLUTIDE
     Indication: Hypertension

REACTIONS (2)
  - Weight decreased [Recovered/Resolved]
  - Abdominal pain upper [Recovered/Resolved]

NARRATIVE: CASE EVENT DATE: 20240301
